FAERS Safety Report 7648222-0 (Version None)
Quarter: 2011Q3

REPORT INFORMATION
  Report Type: 
  Country: None (occurrence: None)
  Receive Date: 20110801
  Receipt Date: 20110727
  Transmission Date: 20111222
  Serious: No
  Sender: FDA-Public Use
  Company Number: US-PFIZER INC-2011172138

PATIENT
  Age: 65 Year
  Sex: Male

DRUGS (1)
  1. PRISTIQ [Suspect]
     Dosage: 50  MG

REACTIONS (2)
  - DEPRESSION [None]
  - DRUG INEFFECTIVE [None]
